FAERS Safety Report 10188241 (Version 1)
Quarter: 2014Q2

REPORT INFORMATION
  Report Type: Other
  Country: FR (occurrence: FR)
  Receive Date: 20140522
  Receipt Date: 20140522
  Transmission Date: 20141212
  Serious: Yes (Hospitalization, Other)
  Sender: FDA-Public Use
  Company Number: FR-ASTELLAS-2014EU004109

PATIENT
  Age: 22 Year
  Sex: Female

DRUGS (11)
  1. PROGRAF [Suspect]
     Indication: PRODUCT USED FOR UNKNOWN INDICATION
     Dosage: 1 DF, TWICE DAILY
     Route: 048
     Dates: start: 200804, end: 200904
  2. PROGRAF [Interacting]
     Route: 048
  3. AUGMENTIN [Interacting]
     Indication: PRODUCT USED FOR UNKNOWN INDICATION
     Route: 048
     Dates: start: 20090310, end: 20090313
  4. TAVANIC [Interacting]
     Indication: PRODUCT USED FOR UNKNOWN INDICATION
     Route: 048
     Dates: start: 20070313, end: 20070315
  5. TAVANIC [Interacting]
     Route: 048
     Dates: start: 20090310, end: 20090312
  6. EFFEXOR [Interacting]
     Indication: ANXIETY
     Dosage: UNK UNK, UNKNOWN FREQ.
     Route: 048
     Dates: start: 20070206
  7. EFFEXOR [Interacting]
     Route: 048
     Dates: start: 20070306, end: 20070331
  8. DUROGESIC [Interacting]
     Indication: PRODUCT USED FOR UNKNOWN INDICATION
     Route: 062
     Dates: start: 20070309
  9. ACTIQ [Interacting]
     Indication: PRODUCT USED FOR UNKNOWN INDICATION
     Route: 048
  10. LEVOFLOXACINE                      /01278901/ [Suspect]
     Indication: PRODUCT USED FOR UNKNOWN INDICATION
     Dosage: UNK, UNKNOWN FREQ.
     Route: 065
     Dates: start: 20070613
  11. FLAGYL                             /00012501/ [Suspect]
     Indication: PRODUCT USED FOR UNKNOWN INDICATION
     Dosage: UNK UNK, UNKNOWN FREQ.
     Route: 065
     Dates: start: 20070312

REACTIONS (2)
  - Convulsion [Not Recovered/Not Resolved]
  - Juvenile myoclonic epilepsy [Recovered/Resolved]
